FAERS Safety Report 6047175-9 (Version None)
Quarter: 2009Q1

REPORT INFORMATION
  Report Type: 
  Country: None (occurrence: None)
  Receive Date: 20090122
  Receipt Date: 20090115
  Transmission Date: 20090719
  Serious: Yes (Life-Threatening)
  Sender: FDA-Public Use
  Company Number: FR-ABBOTT-08P-056-0493360-00

PATIENT
  Sex: Female

DRUGS (13)
  1. CLARITHROMYCIN [Suspect]
     Indication: DRUG USE FOR UNKNOWN INDICATION
     Route: 048
     Dates: start: 20081107, end: 20081112
  2. CLOZAPINE [Suspect]
     Indication: DRUG USE FOR UNKNOWN INDICATION
     Dosage: INCREASED TO 3.5 TABLETS FROM 07NOV2008
     Dates: start: 20080922, end: 20081112
  3. CLOZAPINE [Suspect]
     Dates: start: 20081107
  4. LOXAPINE [Suspect]
     Indication: DRUG USE FOR UNKNOWN INDICATION
     Dosage: VARIABLE DOSE
     Route: 048
     Dates: start: 20080724, end: 20081117
  5. AMITRIPTYLINE HCL [Suspect]
     Indication: DRUG USE FOR UNKNOWN INDICATION
     Dosage: PROGRESSIVE DECREASE FROM 150MG TO 50MG
     Route: 048
     Dates: start: 20080724, end: 20081119
  6. VALPROMIDE [Concomitant]
     Indication: DRUG USE FOR UNKNOWN INDICATION
     Route: 048
  7. VALPROMIDE [Concomitant]
  8. TEMAZEPAM [Concomitant]
     Indication: DRUG USE FOR UNKNOWN INDICATION
     Route: 048
     Dates: start: 20080724
  9. ATORVASTATIN CALCIUM [Concomitant]
     Indication: DRUG USE FOR UNKNOWN INDICATION
     Route: 048
     Dates: start: 20080724
  10. PANTOPRAZOLE SODIUM [Concomitant]
     Indication: DRUG USE FOR UNKNOWN INDICATION
     Route: 048
     Dates: start: 20080724
  11. PANTOPRAZOLE SODIUM [Concomitant]
  12. TRIMEBUTINE [Concomitant]
     Indication: DRUG USE FOR UNKNOWN INDICATION
     Route: 048
     Dates: end: 20081120
  13. OXAZEPAM [Concomitant]
     Indication: DRUG USE FOR UNKNOWN INDICATION
     Dosage: 1.5 TAB AM, 1 TAB MIDDAY, 1.25 TAB PM

REACTIONS (1)
  - AGRANULOCYTOSIS [None]
